FAERS Safety Report 11402699 (Version 1)
Quarter: 2015Q3

REPORT INFORMATION
  Report Type: Spontaneous
  Country: US (occurrence: US)
  Receive Date: 20150821
  Receipt Date: 20150821
  Transmission Date: 20151125
  Serious: No
  Sender: FDA-Public Use
  Company Number: US-ROCHE-1294246

PATIENT
  Sex: Male

DRUGS (3)
  1. PEGASYS [Suspect]
     Active Substance: PEGINTERFERON ALFA-2A
     Indication: CHRONIC HEPATITIS C
     Route: 058
     Dates: start: 201305, end: 201306
  2. COPEGUS [Suspect]
     Active Substance: RIBAVIRIN
     Indication: CHRONIC HEPATITIS C
     Dosage: DIVDIDED DOSES 400/600
     Route: 048
     Dates: start: 201305, end: 201306
  3. TELAPREVIR [Suspect]
     Active Substance: TELAPREVIR
     Indication: CHRONIC HEPATITIS C
     Route: 065
     Dates: start: 201305, end: 201306

REACTIONS (6)
  - Peripheral arterial occlusive disease [Unknown]
  - Nausea [Unknown]
  - Varicose vein [Unknown]
  - Haemoglobin decreased [Unknown]
  - Influenza [Unknown]
  - Hypoaesthesia [Unknown]
